FAERS Safety Report 20176686 (Version 1)
Quarter: 2021Q4

REPORT INFORMATION
  Report Type: Spontaneous
  Country: DE (occurrence: DE)
  Receive Date: 20211213
  Receipt Date: 20211213
  Transmission Date: 20220303
  Serious: Yes (Other)
  Sender: FDA-Public Use
  Company Number: DE-NOVARTISPH-NVSC2021DE279553

PATIENT
  Sex: Male

DRUGS (4)
  1. LEVETIRACETAM [Suspect]
     Active Substance: LEVETIRACETAM
     Indication: Product used for unknown indication
     Dosage: 3500 MG, QD
     Route: 065
  2. LEVETIRACETAM [Suspect]
     Active Substance: LEVETIRACETAM
     Dosage: 1000 MG, QD (500 MILLIGRAM, 2X/DAY (BID)
     Route: 065
     Dates: start: 2016
  3. LEVETIRACETAM [Suspect]
     Active Substance: LEVETIRACETAM
     Dosage: 2000 MG, QD
     Route: 065
     Dates: start: 201709
  4. LEVETIRACETAM [Suspect]
     Active Substance: LEVETIRACETAM
     Dosage: 3000 MG, QD (1500 MILLIGRAM, 2X/DAY (BID)
     Route: 065
     Dates: start: 201905

REACTIONS (7)
  - Generalised tonic-clonic seizure [Recovered/Resolved]
  - Transient epileptic amnesia [Recovered/Resolved]
  - Road traffic accident [Unknown]
  - Postictal state [Recovered/Resolved]
  - Electroencephalogram abnormal [Unknown]
  - Myalgia [Unknown]
  - Overdose [Unknown]

NARRATIVE: CASE EVENT DATE: 20170901
